FAERS Safety Report 18051978 (Version 1)
Quarter: 2020Q3

REPORT INFORMATION
  Report Type: Spontaneous
  Country: US (occurrence: US)
  Receive Date: 20200722
  Receipt Date: 20200722
  Transmission Date: 20201103
  Serious: No
  Sender: FDA-Public Use
  Company Number: US-AUROBINDO-AUR-APL-2020-030991

PATIENT
  Sex: Female

DRUGS (1)
  1. OLOPATADINE HYDROCHLORIDE OPHTHALMIC SOLUTION USP 0.2 % [Suspect]
     Active Substance: OLOPATADINE HYDROCHLORIDE
     Indication: PRODUCT USED FOR UNKNOWN INDICATION
     Dosage: UNK
     Route: 065

REACTIONS (1)
  - Dizziness [Unknown]
